FAERS Safety Report 8886661 (Version 2)
Quarter: 2012Q4

REPORT INFORMATION
  Report Type: 
  Country: IT (occurrence: IT)
  Receive Date: 20121105
  Receipt Date: 20121207
  Transmission Date: 20130627
  Serious: Yes (Hospitalization)
  Sender: FDA-Public Use
  Company Number: PHHY2012IT099752

PATIENT
  Age: 61 Year
  Sex: Male

DRUGS (3)
  1. EXJADE [Suspect]
     Indication: ANAEMIA
     Dosage: 2000 mg, daily
     Route: 048
  2. EXJADE [Suspect]
     Dosage: 2000 mg, daily
     Route: 048
     Dates: start: 20120823, end: 20120907
  3. SANDIMMUN [Concomitant]
     Indication: MYELODYSPLASTIC SYNDROME
     Dosage: 450 mg, UNK
     Route: 048
     Dates: start: 20120601, end: 20120907

REACTIONS (2)
  - Melaena [Recovered/Resolved]
  - Gastric ulcer [Recovered/Resolved]
